FAERS Safety Report 23888088 (Version 1)
Quarter: 2024Q2

REPORT INFORMATION
  Report Type: Spontaneous
  Country: US (occurrence: US)
  Receive Date: 20240523
  Receipt Date: 20240523
  Transmission Date: 20240716
  Serious: No
  Sender: FDA-Public Use
  Company Number: US-AUROBINDO-AUR-APL-2023-064291

PATIENT
  Age: 52 Year
  Sex: Female
  Weight: 56.699 kg

DRUGS (2)
  1. LORATADINE [Suspect]
     Active Substance: LORATADINE
     Indication: Eye pruritus
     Dosage: UNK (1 TABLET IN 24 HOURS)
     Route: 048
     Dates: start: 20230913, end: 20230930
  2. LORATADINE [Suspect]
     Active Substance: LORATADINE
     Indication: Throat irritation

REACTIONS (2)
  - Drug ineffective [Unknown]
  - Therapy cessation [Unknown]

NARRATIVE: CASE EVENT DATE: 20230914
